FAERS Safety Report 20678826 (Version 1)
Quarter: 2022Q2

REPORT INFORMATION
  Report Type: Spontaneous
  Country: US (occurrence: US)
  Receive Date: 20220406
  Receipt Date: 20220406
  Transmission Date: 20220721
  Serious: Yes (Other)
  Sender: FDA-Public Use
  Company Number: US-BAYER-2022A049328

PATIENT
  Age: 71 Year
  Sex: Female

DRUGS (4)
  1. ASPIRIN [Suspect]
     Active Substance: ASPIRIN
  2. METOPROLOL [Suspect]
     Active Substance: METOPROLOL
  3. BIMATOPROST [Suspect]
     Active Substance: BIMATOPROST
  4. BRINZOLAMIDE [Suspect]
     Active Substance: BRINZOLAMIDE

REACTIONS (2)
  - Eye haemorrhage [None]
  - Arterial haemorrhage [None]
